APPROVED DRUG PRODUCT: BETAMETHASONE VALERATE
Active Ingredient: BETAMETHASONE VALERATE
Strength: 0.12%
Dosage Form/Route: AEROSOL, FOAM;TOPICAL
Application: A210639 | Product #001 | TE Code: AB
Applicant: XIROMED PHARMA ESPANA SL
Approved: Apr 18, 2023 | RLD: No | RS: No | Type: RX